FAERS Safety Report 10013977 (Version 2)
Quarter: 2014Q2

REPORT INFORMATION
  Report Type: Spontaneous
  Country: DE (occurrence: DE)
  Receive Date: 20140316
  Receipt Date: 20140526
  Transmission Date: 20141212
  Serious: Yes (Death, Hospitalization, Other)
  Sender: FDA-Public Use
  Company Number: DE-JNJFOC-20140307651

PATIENT
  Age: 70 Year
  Sex: Female
  Weight: 79 kg

DRUGS (9)
  1. XARELTO [Suspect]
     Indication: EMBOLISM VENOUS
     Route: 048
     Dates: start: 201310, end: 201401
  2. XARELTO [Suspect]
     Indication: PELVIC VENOUS THROMBOSIS
     Route: 048
     Dates: start: 201310, end: 201401
  3. SIMVASTATIN [Concomitant]
     Route: 065
  4. PANTOZOL [Concomitant]
     Route: 065
  5. BELOC ZOK [Concomitant]
     Route: 065
     Dates: end: 2013
  6. LANICOR [Concomitant]
     Route: 065
  7. TOREM [Concomitant]
     Route: 065
     Dates: end: 2013
  8. GALVUS [Concomitant]
     Route: 065
     Dates: end: 2013
  9. ENALAPRIL [Concomitant]
     Route: 065
     Dates: end: 2013

REACTIONS (3)
  - Subacute hepatic failure [Fatal]
  - Blood bilirubin increased [Fatal]
  - Drug intolerance [Unknown]
